FAERS Safety Report 11175699 (Version 1)
Quarter: 2015Q2

REPORT INFORMATION
  Report Type: Spontaneous
  Country: US (occurrence: US)
  Receive Date: 20150609
  Receipt Date: 20150609
  Transmission Date: 20150821
  Serious: No
  Sender: FDA-Public Use
  Company Number: US-GLAXOSMITHKLINE-US2015079052

PATIENT
  Age: 81 Year
  Sex: Male

DRUGS (4)
  1. ASPIRIN. [Concomitant]
     Active Substance: ASPIRIN
  2. LOSARTAN [Concomitant]
     Active Substance: LOSARTAN
  3. VENTOLIN HFA [Suspect]
     Active Substance: ALBUTEROL SULFATE
     Indication: CHRONIC OBSTRUCTIVE PULMONARY DISEASE
     Dosage: 3 DF, PRN
     Route: 065
     Dates: start: 20150528
  4. METOPROLOL [Concomitant]
     Active Substance: METOPROLOL

REACTIONS (11)
  - Oropharyngeal pain [Recovering/Resolving]
  - Lip pain [Recovering/Resolving]
  - Odynophagia [Recovering/Resolving]
  - Dysgeusia [Recovering/Resolving]
  - Cough [Recovering/Resolving]
  - Cheilitis [Recovering/Resolving]
  - Tremor [Recovering/Resolving]
  - Prescribed overdose [Unknown]
  - Dry mouth [Recovering/Resolving]
  - Oral mucosal discolouration [Recovering/Resolving]
  - Feeling jittery [Recovering/Resolving]

NARRATIVE: CASE EVENT DATE: 20150528
